FAERS Safety Report 8848691 (Version 1)
Quarter: 2012Q4

REPORT INFORMATION
  Report Type: 
  Country: US (occurrence: US)
  Receive Date: 20121019
  Receipt Date: 20121019
  Transmission Date: 20130627
  Serious: No
  Sender: FDA-Public Use
  Company Number: US-009507513-1210USA007162

PATIENT
  Sex: Female
  Weight: 71.2 kg

DRUGS (2)
  1. IMPLANON [Suspect]
     Indication: CONTRACEPTION
     Dosage: 1 DF, UNK
     Dates: start: 20111222
  2. KLONOPIN [Concomitant]

REACTIONS (2)
  - Coagulopathy [Not Recovered/Not Resolved]
  - Weight increased [Not Recovered/Not Resolved]
